FAERS Safety Report 9901429 (Version 1)
Quarter: 2014Q1

REPORT INFORMATION
  Report Type: Spontaneous
  Country: IT (occurrence: IT)
  Receive Date: 20140217
  Receipt Date: 20140217
  Transmission Date: 20141002
  Serious: Yes (Hospitalization)
  Sender: FDA-Public Use
  Company Number: IT-PFIZER INC-2014042477

PATIENT
  Age: 67 Year
  Sex: Male

DRUGS (3)
  1. XANAX [Suspect]
     Dosage: 60 ML, TOTAL
     Route: 048
     Dates: start: 20131114, end: 20131114
  2. RAMIPRIL [Concomitant]
     Route: 048
  3. CRESTOR [Concomitant]

REACTIONS (2)
  - Suicide attempt [Unknown]
  - Sopor [Unknown]
